FAERS Safety Report 13064845 (Version 1)
Quarter: 2016Q4

REPORT INFORMATION
  Report Type: Spontaneous
  Country: CA (occurrence: CA)
  Receive Date: 20161227
  Receipt Date: 20161227
  Transmission Date: 20170207
  Serious: Yes (Other)
  Sender: FDA-Public Use
  Company Number: CA-TEVA-2015-003134

PATIENT
  Age: 72 Year
  Sex: Female

DRUGS (21)
  1. LYRICA [Concomitant]
     Active Substance: PREGABALIN
     Dates: start: 201403
  2. LACTOBACILLUS [Concomitant]
     Active Substance: LACTOBACILLUS ACIDOPHILUS
  3. LORAZEPAM. [Concomitant]
     Active Substance: LORAZEPAM
  4. COENZYME Q10 [Concomitant]
     Active Substance: UBIDECARENONE
  5. VITAMIN D [Concomitant]
     Active Substance: CHOLECALCIFEROL
     Dates: end: 201503
  6. MAGNESIUM [Concomitant]
     Active Substance: MAGNESIUM
  7. RISEDRONATE SODIUM. [Suspect]
     Active Substance: RISEDRONATE SODIUM
     Indication: OSTEOPOROSIS
     Route: 048
     Dates: start: 2014, end: 201511
  8. MELATONIN [Concomitant]
     Active Substance: MELATONIN
  9. THIAMINE. [Concomitant]
     Active Substance: THIAMINE
  10. UBIQUINOL [Concomitant]
     Active Substance: UBIQUINOL
  11. VITAMIN B1+B6+B12 [Concomitant]
  12. PERCOCET [Concomitant]
     Active Substance: ACETAMINOPHEN\OXYCODONE HYDROCHLORIDE
  13. OMEGA-3 FATTY ACIDS [Concomitant]
     Active Substance: OMEGA-3 FATTY ACIDS
  14. POLICOSANOL [Concomitant]
  15. HYDROMORPHONE [Concomitant]
     Active Substance: HYDROMORPHONE
  16. RISEDRONATE SODIUM. [Suspect]
     Active Substance: RISEDRONATE SODIUM
     Route: 048
     Dates: start: 2015, end: 201607
  17. LYRICA [Concomitant]
     Active Substance: PREGABALIN
     Dates: start: 201504
  18. CALCIUM [Concomitant]
     Active Substance: CALCIUM
     Dates: start: 201503
  19. FENTANYL. [Concomitant]
     Active Substance: FENTANYL
  20. VITAMINS NOS [Concomitant]
     Active Substance: VITAMINS
  21. LYRICA [Concomitant]
     Active Substance: PREGABALIN

REACTIONS (23)
  - Muscular weakness [Not Recovered/Not Resolved]
  - Muscle spasms [Not Recovered/Not Resolved]
  - Back pain [Not Recovered/Not Resolved]
  - Muscle contractions involuntary [Not Recovered/Not Resolved]
  - Bone pain [Not Recovered/Not Resolved]
  - Muscle twitching [Not Recovered/Not Resolved]
  - Pain [Not Recovered/Not Resolved]
  - Dysphonia [Not Recovered/Not Resolved]
  - Fatigue [Not Recovered/Not Resolved]
  - Choking [Not Recovered/Not Resolved]
  - Tongue atrophy [Not Recovered/Not Resolved]
  - Musculoskeletal disorder [Not Recovered/Not Resolved]
  - Grip strength decreased [Not Recovered/Not Resolved]
  - Paraesthesia [Not Recovered/Not Resolved]
  - Neck pain [Not Recovered/Not Resolved]
  - Myalgia [Not Recovered/Not Resolved]
  - Mobility decreased [Not Recovered/Not Resolved]
  - Dysphagia [Not Recovered/Not Resolved]
  - Respiratory muscle weakness [Not Recovered/Not Resolved]
  - Dyspnoea [Not Recovered/Not Resolved]
  - Amyotrophic lateral sclerosis [Not Recovered/Not Resolved]
  - Arthralgia [Not Recovered/Not Resolved]
  - Hypoaesthesia [Not Recovered/Not Resolved]

NARRATIVE: CASE EVENT DATE: 201407
